FAERS Safety Report 14679950 (Version 1)
Quarter: 2018Q1

REPORT INFORMATION
  Report Type: Spontaneous
  Country: JP (occurrence: JP)
  Receive Date: 20180326
  Receipt Date: 20180326
  Transmission Date: 20180509
  Serious: Yes (Other)
  Sender: FDA-Public Use
  Company Number: JP-BAYER-2018-052944

PATIENT
  Sex: Female

DRUGS (1)
  1. STIVARGA [Suspect]
     Active Substance: REGORAFENIB
     Indication: HEPATOCELLULAR CARCINOMA
     Dosage: DAILY DOSE 80 MG, 3 WEEKS ON 1 WEEK OFF
     Route: 048

REACTIONS (4)
  - Diarrhoea [None]
  - Hepatic encephalopathy [None]
  - Back pain [None]
  - Palmar-plantar erythrodysaesthesia syndrome [None]
